FAERS Safety Report 9594353 (Version 1)
Quarter: 2013Q3

REPORT INFORMATION
  Report Type: Spontaneous
  Country: US (occurrence: None)
  Receive Date: 20130927
  Receipt Date: 20130927
  Transmission Date: 20140515
  Serious: No
  Sender: FDA-Public Use
  Company Number: CABO-13003122

PATIENT
  Age: 66 Year
  Sex: Female

DRUGS (11)
  1. COMETRIQ [Suspect]
     Indication: THYROID CANCER
     Route: 048
     Dates: start: 2013, end: 2013
  2. SYNTHROID (LEVOTHYROXINE SODIUM) [Concomitant]
  3. LOMOTRIL (ATROPINE SULFATE, DIPHENOXYLATE HYDROCHLORIDE) [Concomitant]
  4. XGEVA (DENOSUMAB) [Concomitant]
  5. IMODIUM (LOPERAMIDE HYDROCHLORIDE) [Concomitant]
  6. CALCIUM (CALCIUM) [Concomitant]
  7. VITAMIN D3 (COLECALCIFEROL) [Concomitant]
  8. MULTIVITAMIN (VITAMINS NOS) [Concomitant]
  9. FENTANYL (FENTANYL) [Concomitant]
  10. IBUPROFEN  (IBUPROFEN) [Concomitant]
  11. VITAMIN B12 (CYANOCOBALAMIN) [Concomitant]

REACTIONS (4)
  - Lymphoedema [None]
  - Arthralgia [None]
  - Hypoaesthesia [None]
  - Paraesthesia [None]
